FAERS Safety Report 16786835 (Version 2)
Quarter: 2020Q3

REPORT INFORMATION
  Report Type: Spontaneous
  Country: US (occurrence: US)
  Receive Date: 20190909
  Receipt Date: 20200828
  Transmission Date: 20201102
  Serious: Yes (Hospitalization, Other)
  Sender: FDA-Public Use
  Company Number: US-SAOL THERAPEUTICS-2019SAO00362

PATIENT
  Age: 14 Year
  Sex: Female
  Weight: 51 kg

DRUGS (1)
  1. BACLOFEN. [Suspect]
     Active Substance: BACLOFEN
     Dosage: 1200 MG, ONCE (SIXTY 20 MG TABLETS)
     Route: 048

REACTIONS (8)
  - Intentional overdose [Recovered/Resolved]
  - Toxicity to various agents [Recovered/Resolved]
  - Areflexia [Recovered/Resolved]
  - Coma [Recovered/Resolved]
  - Respiratory failure [Recovered/Resolved]
  - Hypotension [Recovered/Resolved]
  - Status epilepticus [Recovered/Resolved]
  - Agitation [Recovered/Resolved]
